FAERS Safety Report 5047455-X (Version None)
Quarter: 2006Q2

REPORT INFORMATION
  Report Type: 
  Country: None (occurrence: None)
  Receive Date: 20060601
  Receipt Date: 20060325
  Transmission Date: 20061013
  Serious: No
  Sender: FDA-Public Use
  Company Number: 2006PV010933

PATIENT
  Age: 70 Year
  Sex: Male
  Weight: 99.7913 kg

DRUGS (3)
  1. BYETTA [Suspect]
     Indication: DIABETES MELLITUS NON-INSULIN-DEPENDENT
     Dosage: SC
     Route: 058
  2. METFORMIN HCL [Concomitant]
  3. AVANDIA [Concomitant]

REACTIONS (3)
  - DECREASED APPETITE [None]
  - EARLY SATIETY [None]
  - WEIGHT DECREASED [None]
